FAERS Safety Report 4917248-X (Version None)
Quarter: 2006Q1

REPORT INFORMATION
  Report Type: 
  Country: None (occurrence: None)
  Receive Date: 20060221
  Receipt Date: 20030605
  Transmission Date: 20060701
  Serious: Yes (Hospitalization, Other)
  Sender: FDA-Public Use
  Company Number: US-MERCK-0306USA00809

PATIENT
  Age: 37 Year
  Sex: Male
  Weight: 68 kg

DRUGS (2)
  1. VIOXX [Suspect]
     Indication: PAIN IN JAW
     Route: 048
     Dates: start: 19990101, end: 20000401
  2. VIOXX [Suspect]
     Indication: ARTHRITIS
     Route: 048
     Dates: start: 19990101, end: 20000401

REACTIONS (21)
  - ABDOMINAL INJURY [None]
  - ANAEMIA [None]
  - ANIMAL BITE [None]
  - ARTHRITIS [None]
  - BLADDER NECK OBSTRUCTION [None]
  - CHEST INJURY [None]
  - CORNEAL ABRASION [None]
  - CYSTITIS [None]
  - DERMATITIS CONTACT [None]
  - GASTRITIS EROSIVE [None]
  - GASTROOESOPHAGEAL REFLUX DISEASE [None]
  - HIATUS HERNIA [None]
  - INCONTINENCE [None]
  - MELAENA [None]
  - MUSCLE SPASMS [None]
  - OESOPHAGITIS [None]
  - PAIN IN EXTREMITY [None]
  - PHARYNGOLARYNGEAL PAIN [None]
  - TESTICULAR DISORDER [None]
  - TESTICULAR TORSION [None]
  - TOOTHACHE [None]
